FAERS Safety Report 4744536-2 (Version None)
Quarter: 2005Q3

REPORT INFORMATION
  Report Type: 
  Country: None (occurrence: None)
  Receive Date: 20050809
  Receipt Date: 20040722
  Transmission Date: 20060218
  Serious: Yes (Life-Threatening, Hospitalization)
  Sender: FDA-Public Use
  Company Number: 2004-118766-NL

PATIENT
  Age: 72 Year
  Sex: Female

DRUGS (10)
  1. MIRTAZAPINE [Suspect]
     Dosage: 15 MG BID ORAL
     Route: 048
     Dates: start: 20040602, end: 20040707
  2. ENBREL [Suspect]
     Indication: RHEUMATOID ARTHRITIS
     Dosage: 25 MG BW SUBCUTANEOUS
     Route: 058
     Dates: start: 20030205, end: 20040707
  3. ATENOLOL [Concomitant]
  4. ALENDRONATE SODIUM [Concomitant]
  5. TOLTERODINE TARTRATE [Concomitant]
  6. ALPRAZOLAM [Concomitant]
  7. ASPIRIN [Concomitant]
  8. VALACYCLOVIR HCL [Concomitant]
  9. FLUCONAZOLE [Concomitant]
  10. CEVIMELINE HYDROCHLORIDE [Concomitant]

REACTIONS (1)
  - AGRANULOCYTOSIS [None]
